FAERS Safety Report 22351510 (Version 1)
Quarter: 2023Q2

REPORT INFORMATION
  Report Type: Spontaneous
  Country: FR (occurrence: FR)
  Receive Date: 20230522
  Receipt Date: 20230522
  Transmission Date: 20230721
  Serious: Yes (Other)
  Sender: FDA-Public Use
  Company Number: FR-PFM-2023-02514

PATIENT
  Age: 26 Year
  Sex: Female

DRUGS (1)
  1. ISOTRETINOIN [Suspect]
     Active Substance: ISOTRETINOIN
     Indication: Dermatitis exfoliative
     Dosage: 0.2 MILLIGRAM/KILOGRAM, QD (0.2 MG/KG PER DAY)
     Route: 065

REACTIONS (3)
  - Dermatitis exfoliative [Unknown]
  - Off label use [Unknown]
  - Product use in unapproved indication [Unknown]
